FAERS Safety Report 8150750-9 (Version None)
Quarter: 2012Q1

REPORT INFORMATION
  Report Type: 
  Country: None (occurrence: None)
  Receive Date: 20120220
  Receipt Date: 20120209
  Transmission Date: 20120608
  Serious: Yes (Other)
  Sender: FDA-Public Use
  Company Number: US-BAYER-2012-016089

PATIENT
  Sex: Male

DRUGS (2)
  1. XARELTO [Interacting]
     Indication: ATRIAL FIBRILLATION
     Dosage: 20 MG, UNK
     Route: 048
  2. ACETYLSALICYLIC ACID SRT [Suspect]

REACTIONS (1)
  - HAEMATURIA [None]
